FAERS Safety Report 12270806 (Version 2)
Quarter: 2016Q4

REPORT INFORMATION
  Report Type: Spontaneous
  Country: US (occurrence: US)
  Receive Date: 20160415
  Receipt Date: 20161012
  Transmission Date: 20170207
  Serious: No
  Sender: FDA-Public Use
  Company Number: US-TEVA-632783USA

PATIENT
  Age: 57 Year
  Sex: Male

DRUGS (1)
  1. ZECUITY [Suspect]
     Active Substance: SUMATRIPTAN SUCCINATE
     Route: 062
     Dates: start: 20151126

REACTIONS (6)
  - Application site bruise [Recovered/Resolved]
  - Feeling abnormal [Unknown]
  - Application site pain [Recovered/Resolved]
  - Dizziness [Unknown]
  - Bradyphrenia [Unknown]
  - Application site erythema [Unknown]

NARRATIVE: CASE EVENT DATE: 20151126
